FAERS Safety Report 9104860 (Version 4)
Quarter: 2013Q2

REPORT INFORMATION
  Report Type: Report from Study
  Country: US (occurrence: US)
  Receive Date: 20130219
  Receipt Date: 20130507
  Transmission Date: 20140414
  Serious: Yes (Hospitalization)
  Sender: FDA-Public Use
  Company Number: PHEH2013US003951

PATIENT
  Age: 51 Year
  Sex: Female
  Weight: 64 kg

DRUGS (11)
  1. GILENYA [Suspect]
     Indication: MULTIPLE SCLEROSIS
     Dosage: 0.5 MG, QD
     Route: 048
     Dates: start: 20130213
  2. PROPRANOLOL [Concomitant]
     Dosage: 1 DF, QD
     Route: 048
     Dates: start: 20130214
  3. SYNTHROID [Concomitant]
     Dosage: 1 DF, QD
     Route: 048
  4. TOPAMAX [Concomitant]
     Dosage: 1 DF, BID
     Route: 048
  5. ZYRTEC [Concomitant]
     Dosage: 1 DF, QD
     Route: 048
  6. PROZAC [Concomitant]
     Dosage: 1 DF, QD
     Route: 048
  7. AMBIEN CR [Concomitant]
     Dosage: 1 DF, QD
     Route: 048
  8. VITAMIN C [Concomitant]
     Dosage: 1 DF, QD
     Route: 048
  9. PROTONIX [Concomitant]
     Dosage: 1 DF, BID
     Route: 048
  10. INDERAL [Concomitant]
     Indication: MIGRAINE
     Dosage: 40 MG IN THE MORNING AND 60 MG IN THE EVENING
  11. IMITREX ^CERENEX^ [Concomitant]
     Dosage: UNK, PRN

REACTIONS (3)
  - Atrial fibrillation [Unknown]
  - Heart rate abnormal [Unknown]
  - Electrocardiogram low voltage [Unknown]
